FAERS Safety Report 9662223 (Version 4)
Quarter: 2013Q4

REPORT INFORMATION
  Report Type: Report from Study
  Country: US (occurrence: US)
  Receive Date: 20131031
  Receipt Date: 20131209
  Transmission Date: 20140711
  Serious: Yes (Other)
  Sender: FDA-Public Use
  Company Number: US-ROCHE-1295101

PATIENT
  Sex: Female

DRUGS (4)
  1. PEGASYS [Suspect]
     Indication: CHRONIC HEPATITIS C
     Route: 058
     Dates: start: 20131020, end: 20131127
  2. PEGASYS [Suspect]
     Route: 065
  3. RIBAPAK [Suspect]
     Indication: CHRONIC HEPATITIS C
     Dosage: DIVIDED DOSES
     Route: 048
     Dates: start: 20131020, end: 20131127
  4. BOCEPREVIR [Suspect]
     Indication: CHRONIC HEPATITIS C
     Route: 065
     Dates: start: 20131117, end: 20131127

REACTIONS (9)
  - Skin discolouration [Recovered/Resolved]
  - Finger amputation [Unknown]
  - Dyspnoea [Unknown]
  - Oxygen saturation decreased [Unknown]
  - Cryoglobulinaemia [Recovered/Resolved]
  - Irritability [Unknown]
  - Emotional disorder [Unknown]
  - Anaemia [Unknown]
  - Anxiety [Unknown]
